FAERS Safety Report 16676274 (Version 2)
Quarter: 2020Q2

REPORT INFORMATION
  Report Type: Spontaneous
  Country: US (occurrence: US)
  Receive Date: 20190807
  Receipt Date: 20200416
  Transmission Date: 20200713
  Serious: Yes (Other)
  Sender: FDA-Public Use
  Company Number: US-GILEAD-2019-0421714

PATIENT
  Age: 55 Year
  Sex: Male

DRUGS (54)
  1. TRUVADA [Suspect]
     Active Substance: EMTRICITABINE\TENOFOVIR DISOPROXIL FUMARATE
     Indication: HIV INFECTION
     Dosage: UNK
     Route: 048
     Dates: start: 20090622, end: 20180103
  2. SPIRONOLACTONE. [Concomitant]
     Active Substance: SPIRONOLACTONE
  3. CYCLOBENZAPRINE. [Concomitant]
     Active Substance: CYCLOBENZAPRINE
  4. LEVETIRACETAM. [Concomitant]
     Active Substance: LEVETIRACETAM
  5. TACLONEX [Concomitant]
     Active Substance: BETAMETHASONE DIPROPIONATE\CALCIPOTRIENE\CALCIPOTRIENE HYDRATE
  6. HYDROCODONE BITARTRATE AND ACETAMINOPHEN [Concomitant]
     Active Substance: ACETAMINOPHEN\HYDROCODONE BITARTRATE
  7. SEROQUEL [Concomitant]
     Active Substance: QUETIAPINE FUMARATE
  8. METFORMIN [Concomitant]
     Active Substance: METFORMIN HYDROCHLORIDE
  9. ZOLPIDEM [Concomitant]
     Active Substance: ZOLPIDEM TARTRATE
  10. QUETIAPINE. [Concomitant]
     Active Substance: QUETIAPINE
  11. AMOXICILLIN. [Concomitant]
     Active Substance: AMOXICILLIN
  12. PROZOSIN [Concomitant]
  13. CHANTIX [Concomitant]
     Active Substance: VARENICLINE TARTRATE
  14. GENVOYA [Concomitant]
     Active Substance: COBICISTAT\ELVITEGRAVIR\EMTRICITABINE\TENOFOVIR ALAFENAMIDE FUMARATE
  15. BUPROPION HCL ER [Concomitant]
     Active Substance: BUPROPION HYDROCHLORIDE
  16. PRAVASTATIN SODIUM. [Concomitant]
     Active Substance: PRAVASTATIN SODIUM
  17. ASPIRINE [Concomitant]
     Active Substance: ASPIRIN
  18. SUSTIVA [Concomitant]
     Active Substance: EFAVIRENZ
  19. INCIVEK [Concomitant]
     Active Substance: TELAPREVIR
  20. METOPROLOL TARTRATE. [Concomitant]
     Active Substance: METOPROLOL TARTRATE
  21. LIDOCAINE 5% EXTRA [Concomitant]
  22. CLONAZEPAM. [Concomitant]
     Active Substance: CLONAZEPAM
  23. PEGASYS [Concomitant]
     Active Substance: PEGINTERFERON ALFA-2A
  24. LISINOPRIL. [Concomitant]
     Active Substance: LISINOPRIL
  25. ONDANSETRON [Concomitant]
     Active Substance: ONDANSETRON
  26. METHYLPREDISOLONE [Concomitant]
     Active Substance: METHYLPREDNISOLONE
  27. CALCIPOTRIENE. [Concomitant]
     Active Substance: CALCIPOTRIENE
  28. CARVEDILOL. [Concomitant]
     Active Substance: CARVEDILOL
  29. ENBREL [Concomitant]
     Active Substance: ETANERCEPT
  30. DULOXETINE. [Concomitant]
     Active Substance: DULOXETINE
  31. LYRICA [Concomitant]
     Active Substance: PREGABALIN
  32. PREDNISONE. [Concomitant]
     Active Substance: PREDNISONE
  33. SEROQUEL XR [Concomitant]
     Active Substance: QUETIAPINE FUMARATE
  34. PAROXETINE. [Concomitant]
     Active Substance: PAROXETINE
  35. AMBIEN [Concomitant]
     Active Substance: ZOLPIDEM TARTRATE
  36. HUMIRA [Concomitant]
     Active Substance: ADALIMUMAB
  37. NOVOLOG [Concomitant]
     Active Substance: INSULIN ASPART
  38. LIDODERM [Concomitant]
     Active Substance: LIDOCAINE
  39. ACETAMINOPHEN AND CODEINE [Concomitant]
     Active Substance: ACETAMINOPHEN\CODEINE PHOSPHATE
  40. CLINDAMYCIN. [Concomitant]
     Active Substance: CLINDAMYCIN
  41. SULFAMETH/TRIMETH [Concomitant]
     Active Substance: SULFAMETHOXAZOLE\TRIMETHOPRIM
  42. PROMETHAZINE [Concomitant]
     Active Substance: PROMETHAZINE HYDROCHLORIDE
  43. COMBIVIR [Concomitant]
     Active Substance: LAMIVUDINE\ZIDOVUDINE
  44. KLONOPIN [Concomitant]
     Active Substance: CLONAZEPAM
  45. XARELTO [Concomitant]
     Active Substance: RIVAROXABAN
  46. VICTOZA [Concomitant]
     Active Substance: LIRAGLUTIDE
  47. RIBAVIRIN. [Concomitant]
     Active Substance: RIBAVIRIN
  48. VENLAFAXINE HCL [Concomitant]
     Active Substance: VENLAFAXINE HYDROCHLORIDE
  49. HYDROXYZINE [Concomitant]
     Active Substance: HYDROXYZINE HYDROCHLORIDE
  50. CEFTRIAXONE. [Concomitant]
     Active Substance: CEFTRIAXONE
  51. LITHIUM CARBONATE. [Concomitant]
     Active Substance: LITHIUM CARBONATE
  52. CRESTOR [Concomitant]
     Active Substance: ROSUVASTATIN CALCIUM
  53. ABILIFY [Concomitant]
     Active Substance: ARIPIPRAZOLE
  54. METOCLOPRAMIDE. [Concomitant]
     Active Substance: METOCLOPRAMIDE

REACTIONS (8)
  - Chronic kidney disease [Not Recovered/Not Resolved]
  - Emotional distress [Unknown]
  - Bone density decreased [Unknown]
  - Tooth loss [Not Recovered/Not Resolved]
  - Economic problem [Unknown]
  - Anxiety [Unknown]
  - Anhedonia [Unknown]
  - Pain [Unknown]

NARRATIVE: CASE EVENT DATE: 201701
